FAERS Safety Report 22775474 (Version 2)
Quarter: 2024Q3

REPORT INFORMATION
  Report Type: Spontaneous
  Country: FR (occurrence: FR)
  Receive Date: 20230802
  Receipt Date: 20240813
  Transmission Date: 20241016
  Serious: Yes (Hospitalization, Other)
  Sender: Haleon PLC
  Company Number: FR-002147023-NVSC2023FR148282

PATIENT
  Age: 16 Year
  Sex: Male

DRUGS (3)
  1. IBUPROFEN [Suspect]
     Active Substance: IBUPROFEN
     Indication: Product used for unknown indication
     Dosage: UNK
     Route: 065
  2. KETOPROFEN [Suspect]
     Active Substance: KETOPROFEN
     Indication: Muscle strain
     Dosage: 200 MG, QD (100 MG, BID)
     Route: 065
  3. AMOXICILLIN [Suspect]
     Active Substance: AMOXICILLIN
     Indication: Tonsillitis streptococcal
     Dosage: UNK
     Route: 065

REACTIONS (5)
  - Cellulitis [Recovering/Resolving]
  - Peritonsillar abscess [Unknown]
  - Dysphagia [Unknown]
  - Infection [Unknown]
  - Odynophagia [Unknown]
